FAERS Safety Report 4659657-2 (Version None)
Quarter: 2005Q2

REPORT INFORMATION
  Report Type: 
  Country: None (occurrence: None)
  Receive Date: 20050411
  Receipt Date: 20041214
  Transmission Date: 20051028
  Serious: No
  Sender: FDA-Public Use
  Company Number: A03200404209

PATIENT
  Age: 72 Year
  Sex: Female
  Weight: 52.1637 kg

DRUGS (6)
  1. UROXATRAL [Suspect]
     Indication: URINARY RETENTION
     Dosage: 10 MG OD - ORAL
     Route: 048
     Dates: start: 20041101
  2. METOPROLOL TARTRATE [Concomitant]
  3. ALPRAZOLAM [Concomitant]
  4. GABAPENTIN [Concomitant]
  5. ESCITALOPRAM OXALATE [Concomitant]
  6. CLONAZEPAM [Concomitant]

REACTIONS (1)
  - TONGUE DISCOLOURATION [None]
